FAERS Safety Report 12291761 (Version 1)
Quarter: 2016Q2

REPORT INFORMATION
  Report Type: Spontaneous
  Country: US (occurrence: US)
  Receive Date: 20160421
  Receipt Date: 20160421
  Transmission Date: 20160815
  Serious: No
  Sender: FDA-Public Use
  Company Number: US-AMGEN-USASL2016031148

PATIENT

DRUGS (1)
  1. REPATHA [Suspect]
     Active Substance: EVOLOCUMAB
     Indication: PRODUCT USED FOR UNKNOWN INDICATION
     Dosage: 140 MG, UNK
     Route: 065

REACTIONS (6)
  - Abdominal discomfort [Unknown]
  - Myalgia [Unknown]
  - Hypoaesthesia [Unknown]
  - Nausea [Unknown]
  - Paraesthesia [Unknown]
  - Arthralgia [Unknown]
